FAERS Safety Report 7325338-X (Version None)
Quarter: 2011Q1

REPORT INFORMATION
  Report Type: 
  Country: None (occurrence: None)
  Receive Date: 20110302
  Receipt Date: 20100921
  Transmission Date: 20110831
  Serious: Yes (Hospitalization, Other)
  Sender: FDA-Public Use
  Company Number: US-BAYER-201029572NA

PATIENT
  Sex: Female
  Weight: 63.492 kg

DRUGS (8)
  1. YAZ [Suspect]
     Indication: PREMENSTRUAL SYNDROME
     Dosage: UNK UNK, UNK
     Route: 048
     Dates: start: 20070801, end: 20080501
  2. BACTRIM [Concomitant]
     Dosage: UNK
     Dates: start: 20020101, end: 20070101
  3. ISOTRETINOIN [Concomitant]
     Indication: ACNE
     Dosage: UNK
     Dates: start: 20070701
  4. IBUPROFEN [Concomitant]
  5. ACCUTANE [Concomitant]
     Indication: ACNE
     Dosage: UNK
     Dates: start: 20070101, end: 20080101
  6. BACTRIM [Concomitant]
     Indication: ACNE
     Dosage: UNK
     Dates: start: 20010101, end: 20060101
  7. YASMIN [Suspect]
     Indication: PREMENSTRUAL SYNDROME
     Dosage: UNK UNK, UNK
     Route: 048
     Dates: start: 20040801, end: 20060801
  8. UNCODEABLE ^UNCLASSIFIABLE^ [Concomitant]

REACTIONS (2)
  - PULMONARY EMBOLISM [None]
  - ANXIETY [None]
